FAERS Safety Report 9669158 (Version 3)
Quarter: 2013Q4

REPORT INFORMATION
  Report Type: Report from Study
  Country: HR (occurrence: HR)
  Receive Date: 20131105
  Receipt Date: 20131203
  Transmission Date: 20140711
  Serious: Yes (Death, Hospitalization)
  Sender: FDA-Public Use
  Company Number: HR-SA-2013SA112071

PATIENT
  Age: 53 Year
  Sex: Female

DRUGS (6)
  1. DOCETAXEL [Suspect]
     Indication: BREAST CANCER
     Route: 042
  2. DOCETAXEL [Suspect]
     Indication: BREAST CANCER
     Route: 042
     Dates: start: 20020619, end: 20020619
  3. DOXORUBICIN [Suspect]
     Indication: BREAST CANCER
     Route: 042
  4. DOXORUBICIN [Suspect]
     Indication: BREAST CANCER
     Route: 042
     Dates: start: 20020619, end: 20020619
  5. CYCLOPHOSPHAMIDE [Suspect]
     Indication: BREAST CANCER
     Route: 042
  6. CYCLOPHOSPHAMIDE [Suspect]
     Indication: BREAST CANCER
     Route: 042
     Dates: start: 20020619, end: 20020619

REACTIONS (1)
  - Cardiac failure [Fatal]
